FAERS Safety Report 5102478-7 (Version None)
Quarter: 2006Q3

REPORT INFORMATION
  Report Type: 
  Country: None (occurrence: None)
  Receive Date: 20060912
  Receipt Date: 20060403
  Transmission Date: 20061208
  Serious: Yes (Hospitalization)
  Sender: FDA-Public Use
  Company Number: DE-ROCHE-442662

PATIENT
  Age: 65 Year
  Sex: Female

DRUGS (6)
  1. MYCOPHENOLATE MOFETIL [Suspect]
     Route: 048
     Dates: start: 20051204, end: 20060727
  2. MYCOPHENOLATE MOFETIL [Suspect]
     Route: 048
     Dates: start: 20060728
  3. FK506 [Suspect]
     Dosage: DOSE REDUCED DUE TO HIGH TACROLIMUS LEVEL.
     Route: 048
     Dates: start: 20051211, end: 20060718
  4. FK506 [Suspect]
     Route: 048
     Dates: start: 20060719, end: 20060727
  5. FK506 [Suspect]
     Route: 048
     Dates: start: 20060728
  6. PREDNISONE TAB [Concomitant]

REACTIONS (2)
  - BLOOD CREATININE INCREASED [None]
  - NEPHROPATHY TOXIC [None]
